FAERS Safety Report 8289219-X (Version None)
Quarter: 2012Q2

REPORT INFORMATION
  Report Type: 
  Country: None (occurrence: None)
  Receive Date: 20120417
  Receipt Date: 20120411
  Transmission Date: 20120825
  Serious: Yes (Disabling, Other)
  Sender: FDA-Public Use
  Company Number: PHEH2011US00492

PATIENT
  Sex: Male

DRUGS (3)
  1. ZOMETA [Suspect]
  2. NOVOLOG [Concomitant]
  3. GABAPENTIN [Concomitant]

REACTIONS (10)
  - ANXIETY [None]
  - INJURY [None]
  - DISCOMFORT [None]
  - DYSPHAGIA [None]
  - PROSTATE CANCER [None]
  - DIABETES MELLITUS [None]
  - HYPERTENSION [None]
  - PAIN [None]
  - DEFORMITY [None]
  - OSTEONECROSIS OF JAW [None]
